FAERS Safety Report 21863680 (Version 4)
Quarter: 2023Q1

REPORT INFORMATION
  Report Type: Report from Study
  Country: US (occurrence: US)
  Receive Date: 20230116
  Receipt Date: 20230320
  Transmission Date: 20230417
  Serious: No
  Sender: FDA-Public Use
  Company Number: US-002147023-NVSC2023US008406

PATIENT
  Sex: Female

DRUGS (2)
  1. COSENTYX [Suspect]
     Active Substance: SECUKINUMAB
     Indication: Product used for unknown indication
     Dosage: UNK
     Route: 065
  2. COSENTYX [Suspect]
     Active Substance: SECUKINUMAB
     Dosage: 150 MG, QMO (EVERY 4 WEEKS)
     Route: 058

REACTIONS (8)
  - Psoriasis [Unknown]
  - Skin haemorrhage [Unknown]
  - Skin disorder [Unknown]
  - Pruritus [Unknown]
  - Erythema [Unknown]
  - Gait disturbance [Unknown]
  - Pain [Unknown]
  - Condition aggravated [Unknown]
